FAERS Safety Report 4912417-7 (Version None)
Quarter: 2006Q1

REPORT INFORMATION
  Report Type: 
  Country: None (occurrence: None)
  Receive Date: 20060215
  Receipt Date: 20050310
  Transmission Date: 20060701
  Serious: Yes (Life-Threatening, Other)
  Sender: FDA-Public Use
  Company Number: US-GLAXOSMITHKLINE-A0549266A

PATIENT
  Age: 36 Year
  Sex: Female

DRUGS (2)
  1. VALTREX [Suspect]
     Dosage: 500MG UNKNOWN
     Route: 048
     Dates: start: 20050303, end: 20050304
  2. NO CONCURRENT MEDICATION [Concomitant]

REACTIONS (4)
  - RASH [None]
  - SWELLING FACE [None]
  - SWOLLEN TONGUE [None]
  - URTICARIA [None]
